FAERS Safety Report 10041985 (Version 1)
Quarter: 2014Q1

REPORT INFORMATION
  Report Type: Spontaneous
  Country: US (occurrence: US)
  Receive Date: 20140327
  Receipt Date: 20140327
  Transmission Date: 20141002
  Serious: No
  Sender: FDA-Public Use
  Company Number: US-009507513-1403USA007647

PATIENT
  Sex: Female

DRUGS (1)
  1. OXYTROL FOR WOMEN [Suspect]
     Indication: INCONTINENCE
     Dosage: 1 DF, UNKNOWN
     Route: 062
     Dates: start: 201302

REACTIONS (3)
  - Application site pain [Unknown]
  - Overdose [Unknown]
  - Wrong technique in drug usage process [Unknown]
